FAERS Safety Report 5650503-7 (Version None)
Quarter: 2008Q1

REPORT INFORMATION
  Report Type: 
  Country: None (occurrence: None)
  Receive Date: 20080304
  Receipt Date: 20080304
  Transmission Date: 20080703
  Serious: Yes (Death)
  Sender: FDA-Public Use
  Company Number: None

PATIENT
  Sex: Male
  Weight: 55 kg

DRUGS (10)
  1. ETODOLAC [Suspect]
     Indication: CACHEXIA
     Dosage: 400MG  BD  ORAL
     Route: 048
     Dates: start: 20070704, end: 20071001
  2. PROPRANOLOL [Suspect]
     Indication: CACHEXIA
     Dosage: 40MG  20MGBREAKFAST, 10MGLUNCH, 10MGEVENING  ORAL
     Route: 048
     Dates: start: 20070704, end: 20071001
  3. HYDROCORTISONE [Concomitant]
  4. NEUROBION [Concomitant]
  5. FAMOTIDINE [Concomitant]
  6. ENSURE [Concomitant]
  7. DERIPHYLLINE [Concomitant]
  8. SYP CODEINE [Concomitant]
  9. DOPAMINE HCL [Concomitant]
  10. CEFTAZIDINE [Concomitant]

REACTIONS (5)
  - ACUTE RESPIRATORY DISTRESS SYNDROME [None]
  - HAEMOPTYSIS [None]
  - HEART RATE INCREASED [None]
  - INFECTION [None]
  - VERTIGO [None]
